FAERS Safety Report 11068222 (Version 1)
Quarter: 2015Q2

REPORT INFORMATION
  Report Type: Spontaneous
  Country: US (occurrence: None)
  Receive Date: 20150424
  Receipt Date: 20150424
  Transmission Date: 20150821
  Serious: No
  Sender: FDA-Public Use
  Company Number: None

PATIENT
  Age: 43 Year
  Sex: Female
  Weight: 69.4 kg

DRUGS (6)
  1. DAILY VITAMIN [Concomitant]
     Active Substance: VITAMINS
  2. CALCIUM [Concomitant]
     Active Substance: CALCIUM
  3. MIDOL [Concomitant]
     Active Substance: IBUPROFEN
  4. NASACORT [Suspect]
     Active Substance: TRIAMCINOLONE ACETONIDE
     Indication: SINUSITIS
     Dates: start: 20150403, end: 20150417
  5. SUPERBALANCED MAKEUP SPF 15 MINERAL RICH FORMULA [Concomitant]
     Active Substance: TITANIUM DIOXIDE
  6. NASACORT [Suspect]
     Active Substance: TRIAMCINOLONE ACETONIDE
     Indication: MULTIPLE ALLERGIES
     Dates: start: 20150403, end: 20150417

REACTIONS (2)
  - Vertigo [None]
  - Hypotension [None]

NARRATIVE: CASE EVENT DATE: 20150422
